FAERS Safety Report 6260057-2 (Version None)
Quarter: 2009Q3

REPORT INFORMATION
  Report Type: 
  Country: None (occurrence: None)
  Receive Date: 20090708
  Receipt Date: 20090617
  Transmission Date: 20100115
  Serious: Yes (Death, Other)
  Sender: FDA-Public Use
  Company Number: NZ-AVENTIS-200916561GDDC

PATIENT
  Age: 86 Year
  Sex: Male

DRUGS (6)
  1. LEFLUNOMIDE [Suspect]
     Route: 048
     Dates: start: 20030115, end: 20030911
  2. AMIODARONE HCL [Suspect]
     Route: 048
     Dates: start: 20030826, end: 20030908
  3. FRUSEMIDE [Concomitant]
     Dosage: DOSE: UNK
  4. GLIPIZIDE [Concomitant]
     Dosage: DOSE: UNK
  5. ATENOLOL [Concomitant]
     Dosage: DOSE: UNK
  6. NUTRITIONAL SUPPLEMENT [Concomitant]
     Dosage: DOSE: UNK

REACTIONS (6)
  - BRONCHITIS [None]
  - CLOSTRIDIAL INFECTION [None]
  - DEATH [None]
  - DRUG INTERACTION [None]
  - HEPATIC ENZYME INCREASED [None]
  - HYPOGLYCAEMIA [None]
